FAERS Safety Report 23986324 (Version 1)
Quarter: 2024Q2

REPORT INFORMATION
  Report Type: Spontaneous
  Country: FR (occurrence: FR)
  Receive Date: 20240618
  Receipt Date: 20240618
  Transmission Date: 20240716
  Serious: Yes (Death, Other)
  Sender: FDA-Public Use
  Company Number: FR-009507513-2406FRA005109

PATIENT
  Sex: Male

DRUGS (1)
  1. KEYTRUDA [Suspect]
     Active Substance: PEMBROLIZUMAB
     Indication: Renal cell carcinoma
     Dosage: UNK

REACTIONS (7)
  - Death [Fatal]
  - Myocarditis [Unknown]
  - Pancreatitis [Unknown]
  - Adrenal insufficiency [Unknown]
  - Colitis [Unknown]
  - Nephritis [Unknown]
  - Thyroid disorder [Unknown]
